FAERS Safety Report 18760581 (Version 1)
Quarter: 2021Q1

REPORT INFORMATION
  Report Type: Spontaneous
  Country: US (occurrence: US)
  Receive Date: 20210119
  Receipt Date: 20210119
  Transmission Date: 20210419
  Serious: Yes (Other)
  Sender: FDA-Public Use
  Company Number: US-SA-2021SA012165

PATIENT
  Age: 54 Year

DRUGS (1)
  1. ZANTAC [Suspect]
     Active Substance: RANITIDINE HYDROCHLORIDE
     Dosage: UNK
     Route: 048
     Dates: start: 201201, end: 201801

REACTIONS (2)
  - Neoplasm malignant [Unknown]
  - Bladder cancer [Unknown]

NARRATIVE: CASE EVENT DATE: 20120101
